FAERS Safety Report 9186686 (Version 2)
Quarter: 2013Q2

REPORT INFORMATION
  Report Type: Report from Study
  Country: JP (occurrence: JP)
  Receive Date: 20130325
  Receipt Date: 20130417
  Transmission Date: 20140414
  Serious: Yes (Death, Life-Threatening, Hospitalization)
  Sender: FDA-Public Use
  Company Number: JP-GILEAD-2013-0072341

PATIENT
  Age: 68 Year
  Sex: Male

DRUGS (20)
  1. AMBRISENTAN [Suspect]
     Indication: PULMONARY ARTERIAL HYPERTENSION
     Dosage: 10MG PER DAY
     Route: 048
     Dates: start: 20110901
  2. ADCIRCA [Concomitant]
     Indication: PULMONARY ARTERIAL HYPERTENSION
     Route: 048
     Dates: start: 20110810
  3. FLOLAN [Concomitant]
     Indication: PULMONARY ARTERIAL HYPERTENSION
     Route: 042
     Dates: start: 20120801, end: 20120801
  4. FLOLAN [Concomitant]
     Route: 042
     Dates: start: 20120802, end: 20120802
  5. FLOLAN [Concomitant]
     Route: 042
     Dates: start: 20120803, end: 20120803
  6. FLOLAN [Concomitant]
     Route: 042
     Dates: start: 20120806, end: 20120806
  7. CARELOAD [Concomitant]
     Indication: PULMONARY ARTERIAL HYPERTENSION
     Route: 048
     Dates: start: 20120209
  8. LUPRAC [Concomitant]
     Route: 048
  9. LUPRAC [Concomitant]
     Route: 048
  10. METILDIGOXIN [Concomitant]
     Route: 048
  11. METILDIGOXIN [Concomitant]
     Route: 048
  12. JUVELA N [Concomitant]
     Route: 048
  13. JUVELA N [Concomitant]
     Route: 048
  14. ANPLAG [Concomitant]
     Route: 048
  15. ANPLAG [Concomitant]
     Route: 048
  16. PARIET [Concomitant]
     Route: 048
  17. PARIET [Concomitant]
     Route: 048
  18. VOLIBRIS [Suspect]
     Indication: PULMONARY ARTERIAL HYPERTENSION
     Dosage: 5MG PER DAY
     Route: 048
     Dates: start: 20110820
  19. VOLIBRIS [Suspect]
     Dosage: 10MG PER DAY
     Route: 048
     Dates: start: 20110901
  20. CARELOAD [Concomitant]
     Indication: PULMONARY ARTERIAL HYPERTENSION
     Route: 048
     Dates: start: 20120209

REACTIONS (3)
  - Cardiac failure [Fatal]
  - Pneumonia [Not Recovered/Not Resolved]
  - Anaemia [Not Recovered/Not Resolved]
